FAERS Safety Report 5391214-5 (Version None)
Quarter: 2007Q3

REPORT INFORMATION
  Report Type: 
  Country: None (occurrence: None)
  Receive Date: 20070719
  Receipt Date: 20070704
  Transmission Date: 20080115
  Serious: Yes (Life-Threatening, Hospitalization, Other)
  Sender: FDA-Public Use
  Company Number: JP-PURDUE-MAG_2007_0000530

PATIENT
  Age: 52 Year
  Sex: Male

DRUGS (5)
  1. THEOPHYLLINE [Suspect]
     Indication: ASTHMA
     Dosage: 400 MG, DAILY
     Route: 048
     Dates: start: 20000101, end: 20050201
  2. PREDNISOLONE [Concomitant]
     Indication: ASTHMA
     Dosage: 20 MG, DAILY
     Route: 048
     Dates: start: 20000101, end: 20050131
  3. AMLODIPINE [Concomitant]
     Indication: HYPERTENSION
     Dosage: 5 MG, DAILY
     Route: 048
     Dates: start: 20000101, end: 20050131
  4. CARBOCISTEINE [Concomitant]
     Indication: ASTHMA
     Dosage: 500 MG, DAILY
     Route: 048
     Dates: start: 20000101, end: 20050131
  5. PRANLUKAST HYDRATE [Concomitant]
     Indication: ASTHMA
     Dosage: 225 MG, DAILY
     Route: 048
     Dates: start: 20000101, end: 20050131

REACTIONS (8)
  - ATRIAL FLUTTER [None]
  - CONVULSION [None]
  - HYPERGLYCAEMIA [None]
  - HYPOKALAEMIA [None]
  - INTENTIONAL OVERDOSE [None]
  - METABOLIC ACIDOSIS [None]
  - NAUSEA [None]
  - VOMITING [None]
